FAERS Safety Report 19595522 (Version 1)
Quarter: 2021Q3

REPORT INFORMATION
  Report Type: Spontaneous
  Country: US (occurrence: US)
  Receive Date: 20210722
  Receipt Date: 20210722
  Transmission Date: 20211014
  Serious: No
  Sender: FDA-Public Use
  Company Number: US-ANTARES PHARMA, INC.-2021-SPO-TX-0362

PATIENT

DRUGS (2)
  1. XYOSTED [Suspect]
     Active Substance: TESTOSTERONE ENANTHATE
     Indication: BLOOD TESTOSTERONE DECREASED
     Dosage: 100 MG/0.5ML, QWK
     Route: 058
     Dates: start: 202104
  2. XYOSTED [Suspect]
     Active Substance: TESTOSTERONE ENANTHATE
     Dosage: 75 UNK
     Route: 058
     Dates: start: 2020

REACTIONS (3)
  - Prostatic specific antigen increased [Recovered/Resolved]
  - Product use issue [Unknown]
  - Product dose omission issue [Unknown]
